FAERS Safety Report 9988770 (Version 3)
Quarter: 2013Q4

REPORT INFORMATION
  Report Type: Spontaneous
  Country: JP (occurrence: None)
  Receive Date: 20131009
  Receipt Date: 20131015
  Transmission Date: 20140711
  Serious: Yes (Other)
  Sender: FDA-Public Use
  Company Number: ADR-2013-01800

PATIENT
  Age: 20 Year
  Sex: Male
  Weight: 46 kg

DRUGS (8)
  1. GABLOFEN [Suspect]
  2. VANCOMYCIN [Suspect]
  3. ZONISAMIDE [Concomitant]
  4. LOXOPROFEN [Concomitant]
  5. REBAMIPIDE [Concomitant]
  6. ZOPICLONE [Concomitant]
  7. MINOCYCLINE HYDROCHLORIDE [Concomitant]
  8. ANTIBIOTICS-RESISTANT LACTIC ACID BACTERIAE (ANTIBIOTICS-RESISTANT LACTIC ACID BACTERIAE) [Concomitant]

REACTIONS (7)
  - Pain in extremity [None]
  - Stitch abscess [None]
  - Post procedural infection [None]
  - Staphylococcal infection [None]
  - Erythema [None]
  - Red man syndrome [None]
  - Drug resistance [None]
